FAERS Safety Report 4941002-6 (Version None)
Quarter: 2006Q1

REPORT INFORMATION
  Report Type: 
  Country: None (occurrence: None)
  Receive Date: 20060307
  Receipt Date: 20060228
  Transmission Date: 20060701
  Serious: Yes (Other)
  Sender: FDA-Public Use
  Company Number: S06-USA-00701-01

PATIENT
  Age: 51 Year
  Sex: Male

DRUGS (1)
  1. CELEXA [Suspect]
     Indication: ANXIETY
     Dosage: 20 MG QD PO
     Route: 048
     Dates: start: 19980101

REACTIONS (4)
  - COUGH [None]
  - FATIGUE [None]
  - IMPAIRED WORK ABILITY [None]
  - PAIN [None]
